FAERS Safety Report 4632781-6 (Version None)
Quarter: 2005Q2

REPORT INFORMATION
  Report Type: 
  Country: None (occurrence: None)
  Receive Date: 20050412
  Receipt Date: 20050404
  Transmission Date: 20051028
  Serious: Yes (Hospitalization)
  Sender: FDA-Public Use
  Company Number: PHBS2005AU04873

PATIENT
  Age: 58 Year
  Sex: Female

DRUGS (3)
  1. CLOZAPINE [Suspect]
     Indication: SCHIZOPHRENIA, PARANOID TYPE
     Dosage: 12.5 MG/D
     Route: 065
  2. CLOZAPINE [Suspect]
     Dosage: 150 MG/D
     Route: 065
  3. TEMAZEPAM [Concomitant]
     Dosage: 10-20 MG AS REQUIRED
     Route: 065

REACTIONS (10)
  - ADVERSE DRUG REACTION [None]
  - ALANINE AMINOTRANSFERASE INCREASED [None]
  - C-REACTIVE PROTEIN INCREASED [None]
  - CHOLANGITIS [None]
  - CHOLELITHIASIS [None]
  - CIRCADIAN RHYTHM SLEEP DISORDER [None]
  - GAMMA-GLUTAMYLTRANSFERASE INCREASED [None]
  - NEUTROPHILIA [None]
  - PYREXIA [None]
  - SINUS TACHYCARDIA [None]
